FAERS Safety Report 20538109 (Version 1)
Quarter: 2022Q1

REPORT INFORMATION
  Report Type: Spontaneous
  Country: US (occurrence: None)
  Receive Date: 20220302
  Receipt Date: 20220302
  Transmission Date: 20220423
  Serious: No
  Sender: FDA-Public Use
  Company Number: None

PATIENT
  Age: 62 Year
  Sex: Male

DRUGS (1)
  1. WARFARIN [Suspect]
     Active Substance: WARFARIN
     Indication: Mitral valve replacement
     Dates: start: 20100709

REACTIONS (5)
  - Haemorrhage [None]
  - Anticoagulation drug level above therapeutic [None]
  - Melaena [None]
  - Haemoglobin decreased [None]
  - Haematocrit decreased [None]

NARRATIVE: CASE EVENT DATE: 20220126
